FAERS Safety Report 16444035 (Version 2)
Quarter: 2019Q3

REPORT INFORMATION
  Report Type: Spontaneous
  Country: US (occurrence: US)
  Receive Date: 20190618
  Receipt Date: 20190820
  Transmission Date: 20191004
  Serious: Yes (Other)
  Sender: FDA-Public Use
  Company Number: US-ACCORD-133240

PATIENT
  Age: 42 Year
  Sex: Female

DRUGS (1)
  1. SPIRONOLACTONE. [Suspect]
     Active Substance: SPIRONOLACTONE
     Indication: ALOPECIA

REACTIONS (6)
  - Vulvovaginal pain [Recovered/Resolved]
  - Mucosal atrophy [Recovered/Resolved]
  - Female sexual arousal disorder [Recovering/Resolving]
  - Off label use [Unknown]
  - Dyspareunia [Recovered/Resolved]
  - Vestibular disorder [Recovered/Resolved]
